FAERS Safety Report 17358753 (Version 1)
Quarter: 2020Q1

REPORT INFORMATION
  Report Type: Spontaneous
  Country: US (occurrence: US)
  Receive Date: 20200201
  Receipt Date: 20200201
  Transmission Date: 20200409
  Serious: No
  Sender: FDA-Public Use
  Company Number: US-LANNETT COMPANY, INC.-US-2019LAN001048

PATIENT
  Sex: Male

DRUGS (2)
  1. GABAPENTIN. [Suspect]
     Active Substance: GABAPENTIN
     Indication: PAIN
     Dosage: 800 MG, BID
     Route: 048
  2. BACLOFEN (20MG) [Suspect]
     Active Substance: BACLOFEN
     Indication: PAIN
     Dosage: 10 MG, BID
     Route: 048

REACTIONS (2)
  - Drug ineffective [Unknown]
  - Pain [Unknown]
